FAERS Safety Report 16305044 (Version 3)
Quarter: 2020Q1

REPORT INFORMATION
  Report Type: Report from Study
  Country: US (occurrence: US)
  Receive Date: 20190513
  Receipt Date: 20200219
  Transmission Date: 20200409
  Serious: Yes (Hospitalization, Other)
  Sender: FDA-Public Use
  Company Number: US-GILEAD-2018-0369052

PATIENT
  Age: 73 Year
  Sex: Male
  Weight: 85.7 kg

DRUGS (35)
  1. CEFEPIME [Suspect]
     Active Substance: CEFEPIME HYDROCHLORIDE
     Indication: PRODUCT USED FOR UNKNOWN INDICATION
     Dosage: 2,G,THREE TIMES DAILY
     Route: 041
     Dates: start: 20181011, end: 20181014
  2. MEPERIDINE                         /00016301/ [Concomitant]
     Active Substance: MEPERIDINE
  3. NORMAL SALINE [Concomitant]
     Active Substance: SODIUM CHLORIDE
     Dosage: 1500,ML,DAILY
     Route: 041
     Dates: start: 20181107, end: 20181107
  4. NORMAL SALINE [Concomitant]
     Active Substance: SODIUM CHLORIDE
     Dosage: 250,ML,DAILY
     Route: 041
     Dates: start: 20181109, end: 20181109
  5. DIPHENHYDRAMINE. [Concomitant]
     Active Substance: DIPHENHYDRAMINE
     Dosage: 12.5,MG,OTHER
     Route: 041
     Dates: start: 20181008, end: 20181008
  6. MAGNESIUM OXIDE. [Concomitant]
     Active Substance: MAGNESIUM OXIDE
     Dosage: 400,MG,TWICE DAILY
     Route: 048
     Dates: start: 20181009, end: 20181009
  7. ACYCLOVIR [ACICLOVIR] [Concomitant]
     Active Substance: ACYCLOVIR
     Dosage: 500,MG,TWICE DAILY
     Route: 041
     Dates: start: 20181016, end: 20181019
  8. HYDROXYZINE HCL [Concomitant]
     Active Substance: HYDROXYZINE HYDROCHLORIDE
     Dosage: 15,MG,AS NECESSARY
     Route: 048
     Dates: start: 20181113
  9. FLUCONAZOLE. [Concomitant]
     Active Substance: FLUCONAZOLE
     Dosage: 400,MG,DAILY
     Route: 048
     Dates: start: 20181019, end: 20181023
  10. FILGRASTIM [Concomitant]
     Active Substance: FILGRASTIM
     Dosage: 480,OTHER,DAILY
     Route: 058
     Dates: start: 20181105, end: 20181107
  11. ACETAMINOPHEN. [Concomitant]
     Active Substance: ACETAMINOPHEN
     Dosage: 650,MG,OTHER
     Route: 048
     Dates: start: 20181008, end: 20181008
  12. CIPROFLOXACIN. [Concomitant]
     Active Substance: CIPROFLOXACIN
     Dosage: 500,MG,OTHER
     Route: 048
     Dates: start: 20181011, end: 20181011
  13. TBO-FILGRASTIM [Concomitant]
     Active Substance: TBO-FILGRASTIM
     Dosage: 480,OTHER,DAILY
     Route: 058
     Dates: start: 20181012, end: 20181014
  14. FLUCONAZOLE. [Concomitant]
     Active Substance: FLUCONAZOLE
     Dosage: 400,MG,OTHER
     Route: 048
     Dates: start: 20181024, end: 20181024
  15. ACETAMINOPHEN. [Concomitant]
     Active Substance: ACETAMINOPHEN
     Dosage: 650,MG,DAILY
     Route: 048
     Dates: start: 20181011, end: 20181011
  16. DIPHENHYDRAMINE. [Concomitant]
     Active Substance: DIPHENHYDRAMINE
     Dosage: 25,MG,DAILY
     Route: 048
     Dates: start: 20181109, end: 20181109
  17. MAGNESIUM OXIDE. [Concomitant]
     Active Substance: MAGNESIUM OXIDE
     Dosage: 400,MG,TWICE DAILY
     Route: 048
     Dates: start: 20181012, end: 20181012
  18. FLUDARABINE [Suspect]
     Active Substance: FLUDARABINE PHOSPHATE
     Indication: BONE MARROW CONDITIONING REGIMEN
     Dosage: 30 MG/M2, QD
     Route: 042
     Dates: start: 20181003, end: 20181005
  19. VALACYCLOVIR                       /01269701/ [Concomitant]
     Active Substance: VALACYCLOVIR HYDROCHLORIDE
  20. ACETAMINOPHEN. [Concomitant]
     Active Substance: ACETAMINOPHEN
     Dosage: 650,MG,DAILY
     Route: 048
     Dates: start: 20181102, end: 20181102
  21. HEPARIN FLUSH [Concomitant]
     Active Substance: HEPARIN SODIUM
     Dosage: 3,ML,THREE TIMES DAILY
     Route: 050
     Dates: start: 20181008, end: 20181009
  22. ACETAMINOPHEN. [Concomitant]
     Active Substance: ACETAMINOPHEN
     Dosage: 650,MG,DAILY
     Route: 048
     Dates: start: 20181109, end: 20181109
  23. ZOSYN [Concomitant]
     Active Substance: PIPERACILLIN SODIUM\TAZOBACTAM SODIUM
  24. MAGNESIUM OXIDE. [Concomitant]
     Active Substance: MAGNESIUM OXIDE
     Dosage: 400,MG,TWICE DAILY
     Route: 048
     Dates: start: 20181011, end: 20181011
  25. IOVERSOL [Concomitant]
     Active Substance: IOVERSOL
     Dosage: 125,ML,DAILY
     Route: 041
     Dates: start: 20181101, end: 20181101
  26. NORMAL SALINE [Concomitant]
     Active Substance: SODIUM CHLORIDE
     Dosage: 1000,ML,DAILY
     Route: 041
     Dates: start: 20181008, end: 20181012
  27. AXICABTAGENE CILOLEUCEL [Suspect]
     Active Substance: AXICABTAGENE CILOLEUCEL
     Indication: B-CELL LYMPHOMA
     Dosage: 68 ML, ONCE
     Route: 042
     Dates: start: 20181008, end: 20181008
  28. CYCLOPHOSPHAMIDE. [Suspect]
     Active Substance: CYCLOPHOSPHAMIDE
     Indication: BONE MARROW CONDITIONING REGIMEN
     Dosage: 500 MG/M2, QD
     Route: 042
     Dates: start: 20181003, end: 20181005
  29. FLUCONAZOLE. [Concomitant]
     Active Substance: FLUCONAZOLE
     Dosage: 400,MG,DAILY
     Route: 048
     Dates: start: 20181013, end: 20181015
  30. FLUCONAZOLE. [Concomitant]
     Active Substance: FLUCONAZOLE
     Dosage: 400,MG,DAILY
     Route: 048
     Dates: start: 20181016, end: 20181018
  31. ONDANSETRON [Concomitant]
     Active Substance: ONDANSETRON
  32. MAGNESIUM OXIDE. [Concomitant]
     Active Substance: MAGNESIUM OXIDE
     Dosage: 400,MG,TWICE DAILY
     Route: 048
     Dates: start: 20181013, end: 20181013
  33. CEFEPIME [Suspect]
     Active Substance: CEFEPIME HYDROCHLORIDE
     Dosage: 2,G,THREE TIMES DAILY
     Route: 041
     Dates: start: 20181015, end: 20181015
  34. FLUCONAZOLE. [Concomitant]
     Active Substance: FLUCONAZOLE
     Dosage: 400,MG,OTHER
     Route: 041
     Dates: start: 20181011, end: 20181011
  35. ACETAMINOPHEN. [Concomitant]
     Active Substance: ACETAMINOPHEN
     Dosage: 650,MG,AS NECESSARY
     Route: 048
     Dates: start: 20181012, end: 20181013

REACTIONS (3)
  - Cytokine release syndrome [Recovered/Resolved]
  - Excessive eye blinking [Recovered/Resolved]
  - Encephalopathy [Recovered/Resolved]

NARRATIVE: CASE EVENT DATE: 20181014
